FAERS Safety Report 14839131 (Version 4)
Quarter: 2018Q3

REPORT INFORMATION
  Report Type: Spontaneous
  Country: NO (occurrence: NO)
  Receive Date: 20180502
  Receipt Date: 20180730
  Transmission Date: 20181010
  Serious: Yes (Hospitalization, Other)
  Sender: FDA-Public Use
  Company Number: NO-PFIZER INC-2018171556

PATIENT
  Age: 62 Year
  Sex: Female

DRUGS (2)
  1. PREDNISOLON [Suspect]
     Active Substance: PREDNISOLONE
     Indication: RHEUMATOID ARTHRITIS
     Dosage: 17.5 MG, 1X/DAY(TAPERED OFF WITH 2.5 MG WEEKLY UNTIL 10 MG DAILY)
     Route: 048
     Dates: start: 20171119
  2. XELJANZ [Suspect]
     Active Substance: TOFACITINIB CITRATE
     Indication: RHEUMATOID ARTHRITIS
     Dosage: 5 MG, 2X/DAY
     Route: 048
     Dates: start: 20171211

REACTIONS (5)
  - Hypertension [Unknown]
  - Pulmonary embolism [Recovered/Resolved]
  - Chronic obstructive pulmonary disease [Unknown]
  - Hair growth abnormal [Unknown]
  - Therapeutic response unexpected [Unknown]

NARRATIVE: CASE EVENT DATE: 20180130
